FAERS Safety Report 8510792-8 (Version None)
Quarter: 2012Q3

REPORT INFORMATION
  Report Type: 
  Country: None (occurrence: None)
  Receive Date: 20120716
  Receipt Date: 20120711
  Transmission Date: 20120928
  Serious: Yes (Other)
  Sender: FDA-Public Use
  Company Number: US-PFIZER INC-2012167209

PATIENT
  Sex: Female

DRUGS (8)
  1. UROQID-ACID NO. 2 [Concomitant]
     Dosage: UNK
  2. ZOCOR [Concomitant]
     Dosage: UNK
  3. LISINOPRIL [Concomitant]
     Dosage: UNK
  4. CALCIUM [Concomitant]
     Dosage: UNK
  5. SUTENT [Suspect]
     Indication: COLON CANCER
     Dosage: 50 MG, 1X/DAY
     Route: 048
  6. WARFARIN [Concomitant]
     Dosage: UNK
  7. COPAXONE [Concomitant]
     Dosage: UNK
  8. NITROFURANTOIN [Concomitant]
     Dosage: UNK

REACTIONS (2)
  - HAEMORRHAGE [None]
  - JAUNDICE [None]
